FAERS Safety Report 24216126 (Version 2)
Quarter: 2024Q4

REPORT INFORMATION
  Report Type: Spontaneous
  Country: US (occurrence: US)
  Receive Date: 20240816
  Receipt Date: 20241021
  Transmission Date: 20250115
  Serious: No
  Sender: ROCHE
  Company Number: US-ROCHE-10000058824

PATIENT
  Age: 75 Year
  Sex: Male

DRUGS (1)
  1. ACTEMRA ACTPEN [Suspect]
     Active Substance: TOCILIZUMAB
     Indication: Rheumatoid arthritis
     Route: 058
     Dates: start: 20240206, end: 20241003

REACTIONS (5)
  - Hepatic enzyme increased [Unknown]
  - Arthralgia [Unknown]
  - Swelling [Unknown]
  - Fatigue [Unknown]
  - Injection site reaction [Unknown]
